FAERS Safety Report 23838779 (Version 2)
Quarter: 2024Q2

REPORT INFORMATION
  Report Type: Report from Study
  Country: IN (occurrence: IN)
  Receive Date: 20240509
  Receipt Date: 20240524
  Transmission Date: 20240716
  Serious: Yes (Hospitalization)
  Sender: FDA-Public Use
  Company Number: IN-VANTIVE-2024VAN016807

PATIENT
  Age: 77 Year
  Sex: Male

DRUGS (2)
  1. DIANEAL PD-2 WITH DEXTROSE [Suspect]
     Active Substance: CALCIUM CHLORIDE\DEXTROSE\MAGNESIUM CHLORIDE\SODIUM CHLORIDE\SODIUM LACTATE
     Indication: Renal failure
     Dosage: 2 BAGS PER DAY
     Route: 033
  2. UNSPECIFIED INGREDIENT [Suspect]
     Active Substance: UNSPECIFIED INGREDIENT
     Route: 065

REACTIONS (1)
  - Blood creatinine increased [Recovering/Resolving]
